FAERS Safety Report 6030398-2 (Version None)
Quarter: 2009Q1

REPORT INFORMATION
  Report Type: 
  Country: None (occurrence: None)
  Receive Date: 20090106
  Receipt Date: 20090106
  Transmission Date: 20090719
  Serious: Yes (Hospitalization)
  Sender: FDA-Public Use
  Company Number: None

PATIENT
  Sex: Male
  Weight: 53.63 kg

DRUGS (3)
  1. CISPLATIN [Suspect]
     Dosage: 70 MG
  2. ERBITUX [Suspect]
     Dosage: 779 MG
  3. CAMPTOSAR [Suspect]
     Dosage: 101 MG

REACTIONS (5)
  - ASPIRATION [None]
  - DYSPNOEA [None]
  - MENTAL STATUS CHANGES [None]
  - REFUSAL OF TREATMENT BY PATIENT [None]
  - RESPIRATORY DISTRESS [None]
